FAERS Safety Report 9292421 (Version 1)
Quarter: 2013Q2

REPORT INFORMATION
  Report Type: Spontaneous
  Country: US (occurrence: None)
  Receive Date: 20130515
  Receipt Date: 20130515
  Transmission Date: 20140414
  Serious: No
  Sender: FDA-Public Use
  Company Number: None

PATIENT
  Age: 61 Year
  Sex: Male

DRUGS (2)
  1. LISINOPRIL [Suspect]
     Indication: HYPERTENSION
     Dates: start: 201009, end: 20111216
  2. PUREONE MULTIVITAMIN [Concomitant]

REACTIONS (6)
  - Drug-induced liver injury [None]
  - Blood pressure increased [None]
  - Jaundice [None]
  - Alanine aminotransferase increased [None]
  - Abdominal pain upper [None]
  - Chromaturia [None]
